FAERS Safety Report 9147132 (Version 6)
Quarter: 2014Q1

REPORT INFORMATION
  Report Type: Report from Study
  Country: GB (occurrence: GB)
  Receive Date: 20130307
  Receipt Date: 20140127
  Transmission Date: 20141002
  Serious: Yes (Hospitalization)
  Sender: FDA-Public Use
  Company Number: GB-ROCHE-1190399

PATIENT
  Age: 34 Year
  Sex: Male
  Weight: 133 kg

DRUGS (4)
  1. PEG-INTERFERON ALFA 2A [Suspect]
     Indication: CHRONIC HEPATITIS C
     Route: 058
     Dates: start: 20120910, end: 20130210
  2. RIBAVIRIN [Suspect]
     Indication: CHRONIC HEPATITIS C
     Route: 048
     Dates: start: 20120910
  3. BLINDED TELAPREVIR [Suspect]
     Indication: CHRONIC HEPATITIS C
     Route: 048
     Dates: start: 20120911, end: 20121105
  4. BLINDED TMC435 [Suspect]
     Indication: CHRONIC HEPATITIS C
     Route: 048
     Dates: start: 20120910, end: 20121202

REACTIONS (2)
  - Neutropenia [Recovered/Resolved]
  - Pleurisy [Recovered/Resolved]
